FAERS Safety Report 20877363 (Version 2)
Quarter: 2022Q3

REPORT INFORMATION
  Report Type: Spontaneous
  Country: US (occurrence: US)
  Receive Date: 20220526
  Receipt Date: 20220817
  Transmission Date: 20221026
  Serious: No
  Sender: FDA-Public Use
  Company Number: US-PFIZER INC-202200738403

PATIENT
  Age: 63 Year
  Sex: Female
  Weight: 72.57 kg

DRUGS (5)
  1. PAXLOVID [Suspect]
     Active Substance: NIRMATRELVIR\RITONAVIR
     Indication: COVID-19 treatment
     Dosage: 3 DF, 2X/DAY (3 PILLS TAKEN IN MORNING AND 3 PILLS TAKEN IN EVENING, TOTAL QUANTITY OF 30 PILLS)
     Dates: start: 20220511
  2. PAXLOVID [Suspect]
     Active Substance: NIRMATRELVIR\RITONAVIR
     Indication: Cough
  3. PAXLOVID [Suspect]
     Active Substance: NIRMATRELVIR\RITONAVIR
     Indication: Wheezing
  4. ZITHROMAX [Concomitant]
     Active Substance: AZITHROMYCIN DIHYDRATE
     Indication: Cough
     Dosage: 500 MG
  5. ZITHROMAX [Concomitant]
     Active Substance: AZITHROMYCIN DIHYDRATE
     Indication: Wheezing
     Dosage: 250 MG

REACTIONS (5)
  - Feeling abnormal [Unknown]
  - Dyspnoea [Unknown]
  - Dysgeusia [Unknown]
  - Product taste abnormal [Unknown]
  - Nausea [Recovered/Resolved]

NARRATIVE: CASE EVENT DATE: 20220512
